FAERS Safety Report 8260937-2 (Version None)
Quarter: 2012Q2

REPORT INFORMATION
  Report Type: 
  Country: None (occurrence: None)
  Receive Date: 20120402
  Receipt Date: 20120326
  Transmission Date: 20120825
  Serious: Yes (Hospitalization)
  Sender: FDA-Public Use
  Company Number: 2012030112

PATIENT
  Age: 59 Year
  Sex: Male

DRUGS (9)
  1. ASPIRIN [Concomitant]
  2. FIBRIC ACID [Concomitant]
  3. PLACEBO [Suspect]
     Indication: TYPE 2 DIABETES MELLITUS
     Dates: start: 20110325
  4. SPIRONOLACTONE [Suspect]
  5. EZETIMIBE [Concomitant]
  6. TORSEMIDE [Suspect]
  7. SAXAGLIPTIN (SAXAGLIPTIN) [Suspect]
     Indication: TYPE 2 DIABETES MELLITUS
     Dates: start: 20110325
  8. FUROSEMIDE [Suspect]
  9. CARVEDILOL [Suspect]

REACTIONS (8)
  - VISION BLURRED [None]
  - RENAL FAILURE ACUTE [None]
  - AORTIC VALVE SCLEROSIS [None]
  - CARDIAC FAILURE CONGESTIVE [None]
  - IRRITABLE BOWEL SYNDROME [None]
  - AORTIC VALVE INCOMPETENCE [None]
  - HEPATIC STEATOSIS [None]
  - HYPOTENSION [None]
